FAERS Safety Report 14919751 (Version 1)
Quarter: 2018Q2

REPORT INFORMATION
  Report Type: Spontaneous
  Country: GR (occurrence: GR)
  Receive Date: 20180521
  Receipt Date: 20180521
  Transmission Date: 20180711
  Serious: Yes (Other)
  Sender: FDA-Public Use
  Company Number: GR-GLAXOSMITHKLINE-GR2018080044

PATIENT
  Age: 58 Year
  Sex: Female

DRUGS (6)
  1. ZOVIRAX [Suspect]
     Active Substance: ACYCLOVIR
     Indication: HERPES VIRUS INFECTION
     Dosage: 200 MG, QD
     Route: 065
     Dates: start: 20180310, end: 20180320
  2. AMOXIL [Suspect]
     Active Substance: AMOXICILLIN
     Indication: TOOTH ABSCESS
     Dosage: UNK
     Route: 065
  3. TENORMIN [Suspect]
     Active Substance: ATENOLOL
     Indication: TACHYCARDIA
     Dosage: UNK
     Route: 065
  4. BIOFENAC (DICLOFENAC SODIUM) [Suspect]
     Active Substance: DICLOFENAC SODIUM
     Indication: MYALGIA
     Dosage: UNK
     Route: 065
  5. NORGESIC [Suspect]
     Active Substance: ASPIRIN\CAFFEINE\ORPHENADRINE CITRATE
     Indication: MYALGIA
     Dosage: UNK
     Route: 065
  6. LONARID [Suspect]
     Active Substance: ACETAMINOPHEN\AMOBARBITAL\CAFFEINE\CODEINE PHOSPHATE
     Indication: HEADACHE
     Dosage: UNK
     Route: 048

REACTIONS (5)
  - Hypoaesthesia [Unknown]
  - Vision blurred [Unknown]
  - Vitreous detachment [Unknown]
  - Vertigo [Unknown]
  - Drug interaction [Unknown]

NARRATIVE: CASE EVENT DATE: 20180314
